FAERS Safety Report 24723252 (Version 1)
Quarter: 2024Q4

REPORT INFORMATION
  Report Type: Spontaneous
  Country: DE (occurrence: DE)
  Receive Date: 20241211
  Receipt Date: 20241211
  Transmission Date: 20250115
  Serious: Yes (Other)
  Sender: PFIZER
  Company Number: DE-SANDOZ-SDZ2024DE098532

PATIENT
  Age: 22 Year
  Sex: Male

DRUGS (1)
  1. ADALIMUMAB [Suspect]
     Active Substance: ADALIMUMAB
     Dosage: UNK

REACTIONS (4)
  - Chronic recurrent multifocal osteomyelitis [Unknown]
  - Acne conglobata [Unknown]
  - Psoriasis [Unknown]
  - Product substitution [Unknown]
